FAERS Safety Report 4379508-3 (Version None)
Quarter: 2004Q2

REPORT INFORMATION
  Report Type: 
  Country: None (occurrence: None)
  Receive Date: 20040614
  Receipt Date: 20040602
  Transmission Date: 20050107
  Serious: No
  Sender: FDA-Public Use
  Company Number: 04H-163-0262740-00

PATIENT
  Age: 55 Year
  Sex: Female

DRUGS (10)
  1. MORPHINE SULFATE INJ [Suspect]
     Indication: ANALGESIC EFFECT
     Dosage: ORAL EQUIV.=500MG/DAY,4MG/H W/ INTER. BOL., INTRAVENOUS
     Route: 042
  2. FENTANYL [Suspect]
     Indication: ANALGESIC EFFECT
     Dosage: 175 MGC/H, TRANSDERMAL
     Route: 062
  3. FENTANYL [Concomitant]
  4. MORPHINE [Concomitant]
  5. ALPRAZOLAM [Concomitant]
  6. GABAPENTIN [Concomitant]
  7. TRAZODONE HCL [Concomitant]
  8. CLONAZEPAM [Concomitant]
  9. DONEPEZIL HCL [Concomitant]
  10. FLUOXETINE [Concomitant]

REACTIONS (4)
  - ASTERIXIS [None]
  - DELIRIUM [None]
  - MYOCLONUS [None]
  - SEDATION [None]
